FAERS Safety Report 24847160 (Version 1)
Quarter: 2025Q1

REPORT INFORMATION
  Report Type: Spontaneous
  Country: US (occurrence: US)
  Receive Date: 20250115
  Receipt Date: 20250115
  Transmission Date: 20250408
  Serious: Yes (Life-Threatening)
  Sender: STRIDES
  Company Number: US-STRIDES ARCOLAB LIMITED-2024SP011709

PATIENT
  Age: 58 Year
  Sex: Female

DRUGS (13)
  1. RANITIDINE [Suspect]
     Active Substance: RANITIDINE
     Indication: Premedication
     Route: 065
  2. RANITIDINE [Suspect]
     Active Substance: RANITIDINE
     Indication: Anaphylaxis prophylaxis
  3. CETIRIZINE [Suspect]
     Active Substance: CETIRIZINE HYDROCHLORIDE
     Indication: Premedication
     Route: 065
  4. CETIRIZINE [Suspect]
     Active Substance: CETIRIZINE HYDROCHLORIDE
     Indication: Anaphylaxis prophylaxis
  5. PREDNISOLONE [Suspect]
     Active Substance: PREDNISOLONE
     Indication: Premedication
     Route: 065
  6. PREDNISOLONE [Suspect]
     Active Substance: PREDNISOLONE
     Indication: Anaphylaxis prophylaxis
  7. ZILEUTON [Suspect]
     Active Substance: ZILEUTON
     Indication: Premedication
     Route: 065
  8. ZILEUTON [Suspect]
     Active Substance: ZILEUTON
     Indication: Anaphylaxis prophylaxis
  9. ERLOTINIB [Concomitant]
     Active Substance: ERLOTINIB
     Indication: Lung adenocarcinoma
     Route: 065
  10. ERLOTINIB [Concomitant]
     Active Substance: ERLOTINIB
     Route: 065
  11. ERLOTINIB [Concomitant]
     Active Substance: ERLOTINIB
     Route: 065
     Dates: end: 2018
  12. OSIMERTINIB [Concomitant]
     Active Substance: OSIMERTINIB
     Indication: Lung adenocarcinoma
     Route: 065
  13. EPINEPHRINE [Concomitant]
     Active Substance: EPINEPHRINE
     Indication: Anaphylactic reaction
     Route: 065

REACTIONS (1)
  - Drug ineffective [Unknown]
